FAERS Safety Report 6136705-4 (Version None)
Quarter: 2009Q1

REPORT INFORMATION
  Report Type: 
  Country: None (occurrence: None)
  Receive Date: 20090330
  Receipt Date: 20090320
  Transmission Date: 20090719
  Serious: Yes (Congenital Anomaly, Other)
  Sender: FDA-Public Use
  Company Number: PHHY2009GB10779

PATIENT
  Sex: Female

DRUGS (4)
  1. CARBAMAZEPINE [Suspect]
     Indication: PARTIAL SEIZURES
     Dosage: 1400 MG, UNK
     Route: 064
  2. LEVETIRACETAM [Suspect]
     Indication: PARTIAL SEIZURES
     Route: 064
  3. CLOBAZAM [Concomitant]
     Indication: PARTIAL SEIZURES
     Dosage: 10 MG, UNK
     Route: 064
  4. TOPIRAMATE [Concomitant]
     Indication: PARTIAL SEIZURES
     Dosage: 100 MG, UNK
     Route: 064

REACTIONS (2)
  - DRUG EXPOSURE DURING PREGNANCY [None]
  - HIP DYSPLASIA [None]
